FAERS Safety Report 16190826 (Version 2)
Quarter: 2019Q2

REPORT INFORMATION
  Report Type: Report from Study
  Country: JP (occurrence: JP)
  Receive Date: 20190412
  Receipt Date: 20190424
  Transmission Date: 20190711
  Serious: Yes (Other)
  Sender: FDA-Public Use
  Company Number: JP-PFIZER INC-2019158905

PATIENT
  Age: 10 Year
  Sex: Male
  Weight: 27 kg

DRUGS (2)
  1. RAPALIMUS [Suspect]
     Active Substance: SIROLIMUS
     Indication: EPILEPSY
     Dosage: 2 MG, 1X/DAY
     Route: 048
     Dates: start: 20180521
  2. RAPALIMUS [Suspect]
     Active Substance: SIROLIMUS
     Indication: CORTICAL DYSPLASIA
     Dosage: 1 MG, 1X/DAY
     Route: 048
     Dates: start: 20180328

REACTIONS (2)
  - Upper respiratory tract infection [Recovered/Resolved]
  - Periodontitis [Recovered/Resolved]

NARRATIVE: CASE EVENT DATE: 20180412
